FAERS Safety Report 25952095 (Version 1)
Quarter: 2025Q4

REPORT INFORMATION
  Report Type: Spontaneous
  Country: US (occurrence: US)
  Receive Date: 20251023
  Receipt Date: 20251023
  Transmission Date: 20260118
  Serious: No
  Sender: MYLAN
  Company Number: US-MYLANLABS-2025M1087231

PATIENT
  Sex: Female

DRUGS (1)
  1. ESTRADIOL TRANSDERMAL SYSTEM [Suspect]
     Active Substance: ESTRADIOL
     Indication: Product used for unknown indication
     Dosage: 0.0375 MILLIGRAM, QD (PER DAY, TWICE WEEKLY)

REACTIONS (6)
  - Sleep disorder [Unknown]
  - Brain fog [Unknown]
  - Insomnia [Unknown]
  - Product label confusion [Unknown]
  - Blood oestrogen increased [Unknown]
  - Product use issue [Unknown]
